FAERS Safety Report 7691297-3 (Version None)
Quarter: 2011Q3

REPORT INFORMATION
  Report Type: 
  Country: None (occurrence: None)
  Receive Date: 20110818
  Receipt Date: 20110809
  Transmission Date: 20111222
  Serious: Yes (Hospitalization)
  Sender: FDA-Public Use
  Company Number: FR-ASTRAZENECA-2011SE48064

PATIENT
  Age: 28747 Day
  Sex: Female

DRUGS (10)
  1. IMOVANE [Concomitant]
     Route: 048
  2. ESCITALOPRAM OXALATE [Interacting]
     Indication: DEPRESSION
     Route: 048
     Dates: end: 20110721
  3. TRANSILANE [Concomitant]
     Route: 048
  4. OXAZEPAM [Concomitant]
     Route: 048
  5. BISOPROLOL FUMARATE [Concomitant]
     Route: 048
  6. ACTONEL [Concomitant]
     Route: 048
  7. ZOLMITRIPTAN [Suspect]
     Indication: HEADACHE
     Route: 048
     Dates: end: 20110721
  8. VALACYCLOVIR HYDROCHLORIDE [Interacting]
     Indication: GENITAL HERPES
     Route: 048
     Dates: end: 20110721
  9. SANMIGRAN [Interacting]
     Indication: HEADACHE
     Route: 048
     Dates: end: 20110721
  10. LESCOL [Concomitant]
     Route: 048

REACTIONS (2)
  - PARTIAL SEIZURES [None]
  - DRUG INTERACTION [None]
